FAERS Safety Report 8347822-2 (Version None)
Quarter: 2012Q2

REPORT INFORMATION
  Report Type: 
  Country: None (occurrence: None)
  Receive Date: 20120509
  Receipt Date: 20120501
  Transmission Date: 20120825
  Serious: Yes (Congenital Anomaly)
  Sender: FDA-Public Use
  Company Number: US-GLAXOSMITHKLINE-A0976851A

PATIENT
  Sex: Female

DRUGS (1)
  1. PAXIL [Suspect]
     Indication: PRODUCT USED FOR UNKNOWN INDICATION
     Route: 064

REACTIONS (5)
  - FEMORAL ANTEVERSION [None]
  - CONGENITAL KNEE DEFORMITY [None]
  - FOETAL EXPOSURE DURING PREGNANCY [None]
  - CONGENITAL ANOMALY [None]
  - FOOT DEFORMITY [None]
